FAERS Safety Report 9536563 (Version 1)
Quarter: 2013Q2

REPORT INFORMATION
  Report Type: Spontaneous
  Country: US (occurrence: None)
  Receive Date: 20130506
  Receipt Date: 20130506
  Transmission Date: 20140414
  Serious: Yes (Hospitalization, Other)
  Sender: FDA-Public Use
  Company Number: 7165301

PATIENT
  Age: 3 Year
  Sex: Male
  Weight: 16 kg

DRUGS (7)
  1. SAIZEN [Suspect]
     Indication: GROWTH HORMONE DEFICIENCY
     Dates: start: 201106
  2. SINGULAIR (MONTELUKAST) 10MG [Concomitant]
  3. ALBUTEROL (SALBUTAMOL) [Concomitant]
  4. MELATONIN (MELATONIN) [Concomitant]
  5. NEURONTIN (GABAPENTIN) [Concomitant]
  6. REGLAN (METOCLOPRAMIDE) [Concomitant]
  7. VITAMIN D (ERGOCALCIFEROL) [Concomitant]

REACTIONS (7)
  - Lung infection [None]
  - Bronchiolitis [None]
  - Infection [None]
  - Nasal congestion [None]
  - Rhinorrhoea [None]
  - Weight decreased [None]
  - Asthma [None]
